FAERS Safety Report 20643062 (Version 1)
Quarter: 2022Q1

REPORT INFORMATION
  Report Type: Spontaneous
  Country: US (occurrence: None)
  Receive Date: 20220325
  Receipt Date: 20220325
  Transmission Date: 20220423
  Serious: Yes (Death)
  Sender: FDA-Public Use
  Company Number: None

PATIENT
  Age: 33 Year
  Sex: Female
  Weight: 88.0 kg

DRUGS (37)
  1. CAPECITABINE [Suspect]
     Active Substance: CAPECITABINE
     Indication: Breast cancer
     Dosage: FREQUENCY : TWICE A DAY;?
     Route: 048
  2. ACETAZOLAMIDE [Concomitant]
     Active Substance: ACETAZOLAMIDE
  3. ASPIRIN-ACETAMINOPHEN-CAFFIENE [Concomitant]
  4. ATELPLASE [Concomitant]
  5. B COMPLETE [Concomitant]
  6. CALCIUM CARB-CHOLECALCIFEROL [Concomitant]
  7. DEXAMETHASONE [Concomitant]
     Active Substance: DEXAMETHASONE
  8. EXCEDRIN [Concomitant]
     Active Substance: ACETAMINOPHEN\ASPIRIN\CAFFEINE
  9. FAMOTIDINE [Concomitant]
     Active Substance: FAMOTIDINE
  10. FIORICET [Concomitant]
     Active Substance: ACETAMINOPHEN\BUTALBITAL\CAFFEINE
  11. FOLIC ACID [Concomitant]
     Active Substance: FOLIC ACID
  12. GRANISETRON [Concomitant]
     Active Substance: GRANISETRON
  13. HAIR SKIN NAILS FORMULA [Concomitant]
  14. HEPARIN [Concomitant]
     Active Substance: HEPARIN SODIUM
  15. KANJINTI [Concomitant]
     Active Substance: TRASTUZUMAB-ANNS
  16. KLOR-CON [Concomitant]
     Active Substance: POTASSIUM CHLORIDE
  17. LORATADINE [Concomitant]
     Active Substance: LORATADINE
  18. LORAZEPAM [Concomitant]
     Active Substance: LORAZEPAM
  19. LOVENOX [Concomitant]
     Active Substance: ENOXAPARIN SODIUM
  20. MECLIZINE [Concomitant]
     Active Substance: MECLIZINE HYDROCHLORIDE
  21. METHYLPREDNISOLONE [Concomitant]
     Active Substance: METHYLPREDNISOLONE
  22. METOPROLOL [Concomitant]
     Active Substance: METOPROLOL
  23. MIRALAX [Concomitant]
     Active Substance: POLYETHYLENE GLYCOL 3350
  24. MOBIC [Concomitant]
     Active Substance: MELOXICAM
  25. MORPHINE [Concomitant]
     Active Substance: MORPHINE
  26. VITAMINS [Concomitant]
     Active Substance: VITAMINS
  27. SODIUM CHLORIDE [Concomitant]
     Active Substance: SODIUM CHLORIDE
  28. OMEPRAZOLE [Concomitant]
     Active Substance: OMEPRAZOLE
  29. ONDANSETRON [Concomitant]
     Active Substance: ONDANSETRON
  30. OXYCODONE [Concomitant]
     Active Substance: OXYCODONE
  31. PAROXETINE [Concomitant]
     Active Substance: PAROXETINE
  32. PAXIL [Concomitant]
     Active Substance: PAROXETINE HYDROCHLORIDE
  33. POTASSIUM CHLORIDE [Concomitant]
     Active Substance: POTASSIUM CHLORIDE
  34. SENOKOT [Concomitant]
     Active Substance: SENNOSIDES
  35. VALACYCLOVIR [Concomitant]
     Active Substance: VALACYCLOVIR HYDROCHLORIDE
  36. VITAMIN B [Concomitant]
     Active Substance: VITAMIN B
  37. ZOLADEX [Concomitant]
     Active Substance: GOSERELIN ACETATE

REACTIONS (2)
  - Disease progression [None]
  - Cerebral haemorrhage [None]

NARRATIVE: CASE EVENT DATE: 20220323
